FAERS Safety Report 15766775 (Version 1)
Quarter: 2018Q4

REPORT INFORMATION
  Report Type: Spontaneous
  Country: DE (occurrence: DE)
  Receive Date: 20181227
  Receipt Date: 20181227
  Transmission Date: 20190205
  Serious: Yes (Other)
  Sender: FDA-Public Use
  Company Number: DE-JNJFOC-20181227541

PATIENT
  Age: 83 Year
  Sex: Female

DRUGS (1)
  1. TRAMADOL HYDROCHLORIDE. [Suspect]
     Active Substance: TRAMADOL HYDROCHLORIDE
     Indication: SPINAL PAIN
     Route: 065

REACTIONS (10)
  - Syncope [Unknown]
  - Swelling of eyelid [Unknown]
  - Delirium [Unknown]
  - Vomiting [Unknown]
  - Somnolence [Unknown]
  - Decreased appetite [Unknown]
  - Fall [Unknown]
  - Blood pressure increased [Unknown]
  - Headache [Unknown]
  - Nausea [Unknown]

NARRATIVE: CASE EVENT DATE: 201811
